FAERS Safety Report 5713860-9 (Version None)
Quarter: 2008Q2

REPORT INFORMATION
  Report Type: 
  Country: None (occurrence: None)
  Receive Date: 20080421
  Receipt Date: 20080411
  Transmission Date: 20081010
  Serious: Yes (Other)
  Sender: FDA-Public Use
  Company Number: 2008006507

PATIENT
  Age: 56 Year
  Sex: Female
  Weight: 65 kg

DRUGS (1)
  1. ROGAINE [Suspect]
     Indication: ALOPECIA
     Dosage: TOPICAL
     Route: 061
     Dates: start: 20080301, end: 20080308

REACTIONS (5)
  - ABNORMAL SENSATION IN EYE [None]
  - CARDIOVASCULAR DISORDER [None]
  - DISORIENTATION [None]
  - DIZZINESS [None]
  - HEADACHE [None]
